FAERS Safety Report 19430481 (Version 1)
Quarter: 2021Q2

REPORT INFORMATION
  Report Type: Spontaneous
  Country: FR (occurrence: FR)
  Receive Date: 20210617
  Receipt Date: 20210617
  Transmission Date: 20210717
  Serious: Yes (Death)
  Sender: FDA-Public Use
  Company Number: NVSC2021FR134391

PATIENT
  Age: 51 Year
  Sex: Male
  Weight: 100 kg

DRUGS (8)
  1. KETAMINE RENAUDIN [Suspect]
     Active Substance: KETAMINE
     Indication: INDUCTION OF ANAESTHESIA
     Dosage: 50 MG, TOTAL
     Route: 042
     Dates: start: 20210522
  2. AMOXICILLINE ACIDE CLAVULANIQUE SANDOZ [Suspect]
     Active Substance: AMOXICILLIN\CLAVULANATE POTASSIUM
     Indication: PERITONITIS
     Dosage: 2 DF,TOTAL  (2 FOIS 1G/200MG)
     Route: 042
     Dates: start: 20210522, end: 20210522
  3. CELOCURINE [Suspect]
     Active Substance: SUCCINYLCHOLINE
     Indication: ENDOTRACHEAL INTUBATION
     Dosage: 100 MG, TOTAL
     Route: 042
     Dates: start: 20210522
  4. PROPOFOL LIPURO [Suspect]
     Active Substance: PROPOFOL
     Indication: INDUCTION OF ANAESTHESIA
     Dosage: 400 MG, TOTAL
     Route: 042
     Dates: start: 20210522
  5. PHLOROGLUCINOL ARROW [Suspect]
     Active Substance: PHLOROGLUCINOL
     Indication: PERITONITIS
     Dosage: 80 MG, TOTAL
     Route: 042
     Dates: start: 20210522
  6. ROCURONIUM [Suspect]
     Active Substance: ROCURONIUM BROMIDE
     Indication: ENDOTRACHEAL INTUBATION
     Dosage: 50 MG, TOTAL
     Route: 042
     Dates: start: 20210522
  7. IOMERON [Suspect]
     Active Substance: IOMEPROL
     Indication: INDUCTION OF ANAESTHESIA
     Dosage: 90 MG, TOTAL
     Route: 042
     Dates: start: 20210522
  8. PARACETAMOL MACOPHARMA [Suspect]
     Active Substance: ACETAMINOPHEN
     Indication: PERITONITIS
     Dosage: 2 DF, TOTAL (2 FOIS 1G/200MG)
     Route: 042
     Dates: start: 20210522, end: 20210522

REACTIONS (1)
  - Cardiogenic shock [Fatal]

NARRATIVE: CASE EVENT DATE: 20210522
